FAERS Safety Report 18686986 (Version 1)
Quarter: 2020Q4

REPORT INFORMATION
  Report Type: Report from Study
  Country: US (occurrence: US)
  Receive Date: 20201231
  Receipt Date: 20201231
  Transmission Date: 20210114
  Serious: No
  Sender: FDA-Public Use
  Company Number: US-IPSEN BIOPHARMACEUTICALS, INC.-2020-26131

PATIENT
  Age: 63 Year

DRUGS (1)
  1. DYSPORT [Suspect]
     Active Substance: ABOBOTULINUMTOXINA
     Indication: TORTICOLLIS
     Dosage: 750 IU (TORTICOLLIS: 250 UNITS, LATEROCOLLIS: 500 UNITS)
     Route: 065

REACTIONS (1)
  - Therapeutic response shortened [Unknown]
